FAERS Safety Report 6868523-3 (Version None)
Quarter: 2010Q3

REPORT INFORMATION
  Report Type: 
  Country: None (occurrence: None)
  Receive Date: 20100722
  Receipt Date: 20080716
  Transmission Date: 20110219
  Serious: Yes (Other)
  Sender: FDA-Public Use
  Company Number: US-PFIZER INC-2008047001

PATIENT
  Sex: Male
  Weight: 81.818 kg

DRUGS (3)
  1. CHANTIX [Suspect]
     Indication: SMOKING CESSATION THERAPY
     Dates: start: 20080520
  2. CYMBALTA [Concomitant]
  3. LAMICTAL [Concomitant]
     Indication: CONVULSION

REACTIONS (1)
  - CONVULSION [None]
